FAERS Safety Report 17018442 (Version 2)
Quarter: 2019Q4

REPORT INFORMATION
  Report Type: Report from Study
  Country: DE (occurrence: DE)
  Receive Date: 20191111
  Receipt Date: 20191115
  Transmission Date: 20200122
  Serious: Yes (Other)
  Sender: FDA-Public Use
  Company Number: PHHY2019DE160893

PATIENT
  Sex: Male
  Weight: 110 kg

DRUGS (6)
  1. TORASEMIDE [Concomitant]
     Active Substance: TORSEMIDE
     Indication: OEDEMA PERIPHERAL
     Dosage: 1 DF, QD
     Route: 048
     Dates: start: 20190505
  2. TRAMADOL. [Concomitant]
     Active Substance: TRAMADOL
     Indication: SPONDYLOARTHROPATHY
     Dosage: 100 MG, PRN
     Route: 048
     Dates: start: 20180717
  3. COSENTYX [Suspect]
     Active Substance: SECUKINUMAB
     Indication: ANKYLOSING SPONDYLITIS
     Dosage: 300 MG, UNK
     Route: 058
     Dates: start: 20180517
  4. AMLODIPINE [Concomitant]
     Active Substance: AMLODIPINE BESYLATE
     Indication: HYPERTENSION
     Dosage: 2 DF, QD
     Route: 048
     Dates: start: 20150213
  5. RAMIPRIL. [Concomitant]
     Active Substance: RAMIPRIL
     Indication: HYPERTENSION
     Dosage: 2 DF, QD
     Route: 048
     Dates: start: 20150513
  6. IBUPROFEN. [Concomitant]
     Active Substance: IBUPROFEN
     Indication: SPONDYLOARTHROPATHY
     Dosage: 800 MG, PRN
     Route: 048
     Dates: start: 20170206

REACTIONS (4)
  - Cryptitis [Recovered/Resolved]
  - Epididymitis [Recovered/Resolved]
  - Oedema peripheral [Recovering/Resolving]
  - Testicular swelling [Recovering/Resolving]

NARRATIVE: CASE EVENT DATE: 201904
